FAERS Safety Report 11666691 (Version 3)
Quarter: 2016Q2

REPORT INFORMATION
  Report Type: Spontaneous
  Country: US (occurrence: US)
  Receive Date: 20151027
  Receipt Date: 20160525
  Transmission Date: 20160815
  Serious: Yes (Other)
  Sender: FDA-Public Use
  Company Number: PHEH2015US021182

PATIENT
  Age: 69 Year
  Sex: Female

DRUGS (1)
  1. RECLAST [Suspect]
     Active Substance: ZOLEDRONIC ACID
     Indication: OSTEOPOROSIS
     Dosage: (INFUSION FOR 5 YEARS)
     Route: 042
     Dates: start: 20130101

REACTIONS (1)
  - Gingival disorder [Unknown]

NARRATIVE: CASE EVENT DATE: 20150401
